FAERS Safety Report 5714172-X (Version None)
Quarter: 2008Q2

REPORT INFORMATION
  Report Type: 
  Country: None (occurrence: None)
  Receive Date: 20080423
  Receipt Date: 20071001
  Transmission Date: 20081010
  Serious: No
  Sender: FDA-Public Use
  Company Number: US-KINGPHARMUSA00001-K200701273

PATIENT

DRUGS (14)
  1. SKELAXIN [Suspect]
     Indication: BACK PAIN
     Dosage: 800 MG, TID
     Route: 048
     Dates: start: 20070928, end: 20070930
  2. ALTACE [Concomitant]
     Indication: HYPERTENSION
     Dosage: 10 MG, BID
     Route: 048
  3. ZOCOR [Concomitant]
     Indication: HYPERCHOLESTEROLAEMIA
     Dosage: 80 MG, QD
  4. HYTRIN [Concomitant]
     Indication: BENIGN PROSTATIC HYPERPLASIA
     Dosage: 10 MG, QD
     Route: 048
  5. HYTRIN [Concomitant]
     Indication: HYPERTENSION
  6. PROSCAR [Concomitant]
     Indication: BENIGN PROSTATIC HYPERPLASIA
     Dosage: 5 MG, QD
     Route: 048
  7. OMEPRAZOLE [Concomitant]
     Indication: GASTROOESOPHAGEAL REFLUX DISEASE
     Dosage: 20 MG, QD
     Route: 048
  8. AMLODIPINE [Concomitant]
     Indication: HYPERTENSION
     Dosage: 2.5 MG, QD
     Route: 048
  9. LEVOTHYROXINE SODIUM [Concomitant]
     Indication: THYROID DISORDER
     Dosage: .25 MG, QD
     Route: 048
  10. CLONAZEPAM [Concomitant]
     Indication: ANXIETY
     Dosage: .5 MG, QD
     Route: 048
  11. ENTERIC ASPIRIN [Concomitant]
     Indication: CARDIOVASCULAR EVENT PROPHYLAXIS
     Dosage: 325 MG, QD
     Route: 048
  12. NIACIN [Concomitant]
     Indication: HYPERCHOLESTEROLAEMIA
     Dosage: 1000 MG, QHS
     Route: 048
  13. ANDRODERM [Concomitant]
     Indication: OSTEOPOROSIS
     Dosage: 2.5 MG, QD
     Route: 061
  14. IBUPROFEN [Concomitant]
     Indication: BACK PAIN
     Dosage: 600 MG, BID
     Route: 048
     Dates: start: 20070928

REACTIONS (3)
  - DIARRHOEA [None]
  - FAECAL INCONTINENCE [None]
  - FREQUENT BOWEL MOVEMENTS [None]
